FAERS Safety Report 19592533 (Version 2)
Quarter: 2021Q3

REPORT INFORMATION
  Report Type: Other
  Country: CN (occurrence: CN)
  Receive Date: 20210722
  Receipt Date: 20210803
  Transmission Date: 20211014
  Serious: Yes (Other)
  Sender: FDA-Public Use
  Company Number: CN-ROCHE-2871307

PATIENT

DRUGS (5)
  1. PEMBROLIZUMAB. [Suspect]
     Active Substance: PEMBROLIZUMAB
     Indication: NON-SMALL CELL LUNG CANCER
     Route: 065
  2. NIVOLUMAB [Suspect]
     Active Substance: NIVOLUMAB
     Indication: NON-SMALL CELL LUNG CANCER
     Route: 065
  3. DURVALUMAB. [Suspect]
     Active Substance: DURVALUMAB
     Indication: NON-SMALL CELL LUNG CANCER
     Route: 065
  4. ATEZOLIZUMAB. [Suspect]
     Active Substance: ATEZOLIZUMAB
     Indication: NON-SMALL CELL LUNG CANCER
     Route: 065
  5. BEVACIZUMAB. [Suspect]
     Active Substance: BEVACIZUMAB
     Indication: NON-SMALL CELL LUNG CANCER
     Route: 065

REACTIONS (50)
  - Pancreatitis [Unknown]
  - Chills [Unknown]
  - Neuropathy peripheral [Unknown]
  - Pleural effusion [Unknown]
  - Seizure [Unknown]
  - Immune thrombocytopenia [Unknown]
  - Neutropenia [Unknown]
  - Pneumothorax [Unknown]
  - Bone marrow failure [Unknown]
  - Nephritis [Unknown]
  - Oedema [Unknown]
  - Hypoaesthesia [Unknown]
  - Abdominal pain [Unknown]
  - Stomatitis [Unknown]
  - Syncope [Unknown]
  - Pericardial effusion [Unknown]
  - Acute kidney injury [Unknown]
  - Disseminated intravascular coagulation [Unknown]
  - Hepatitis [Unknown]
  - Fatigue [Unknown]
  - Asthenia [Unknown]
  - Dizziness [Unknown]
  - Headache [Unknown]
  - Decreased appetite [Unknown]
  - Haemoptysis [Unknown]
  - Hepatic function abnormal [Unknown]
  - Constipation [Unknown]
  - Gastritis [Unknown]
  - Hyponatraemia [Unknown]
  - Cholangitis [Unknown]
  - Colitis [Unknown]
  - Vomiting [Unknown]
  - Hypothyroidism [Unknown]
  - Pneumonitis [Unknown]
  - Anaemia [Unknown]
  - Renal failure [Unknown]
  - Hepatic failure [Unknown]
  - Respiratory failure [Unknown]
  - Interstitial lung disease [Unknown]
  - Cerebrovascular accident [Unknown]
  - Enterocolitis [Unknown]
  - Pain [Unknown]
  - General physical health deterioration [Unknown]
  - Diarrhoea [Unknown]
  - Nausea [Unknown]
  - Dehydration [Unknown]
  - Diabetes mellitus [Unknown]
  - Pyrexia [Unknown]
  - Malaise [Unknown]
  - Thrombocytopenia [Unknown]
